FAERS Safety Report 8396591 (Version 2)
Quarter: 2013Q4

REPORT INFORMATION
  Report Type: Report from Study
  Country: US (occurrence: US)
  Receive Date: 20120208
  Receipt Date: 20131203
  Transmission Date: 20140711
  Serious: Yes (Other)
  Sender: FDA-Public Use
  Company Number: PHEH2012US002788

PATIENT
  Age: 64 Year
  Sex: Female

DRUGS (14)
  1. GILENYA [Suspect]
     Indication: MULTIPLE SCLEROSIS
     Dosage: 0.5 MG, QD
     Route: 048
     Dates: start: 20111223, end: 20120117
  2. ASPIRIN [Concomitant]
     Dosage: 325 MG, UNK
  3. EVISTA [Concomitant]
     Dosage: 60 MG, UNK
  4. NEURONTIN [Concomitant]
  5. SYNTHROID [Concomitant]
     Dosage: 1.25 MG, UNK
  6. PRILOSEC [Concomitant]
     Dosage: 20 MG, UNK
  7. ULTRAM                             /01573601/ [Concomitant]
  8. GABAPENTIN [Concomitant]
     Dosage: 800 MG, UNK
  9. SINGULAIR [Concomitant]
     Dosage: 10 MG, UNK
  10. PRAVASTATIN [Concomitant]
     Dosage: 40 MG, UNK
  11. LIDODERM [Concomitant]
     Dosage: 5 %, UNK
  12. CALCIUM + VITAMIN D                /01483701/ [Concomitant]
     Dosage: 600 MG, UNK
  13. BENADRYL                           /00647601/ [Concomitant]
     Dosage: 75 MG, UNK
  14. CENTRUM [Concomitant]

REACTIONS (4)
  - Ocular vascular disorder [Unknown]
  - Macular oedema [Recovering/Resolving]
  - Blindness [Recovering/Resolving]
  - Vision blurred [Recovering/Resolving]
